FAERS Safety Report 24545766 (Version 1)
Quarter: 2024Q4

REPORT INFORMATION
  Report Type: Spontaneous
  Country: CA (occurrence: CA)
  Receive Date: 20241024
  Receipt Date: 20241024
  Transmission Date: 20250115
  Serious: Yes (Death)
  Sender: MYLAN
  Company Number: CA-MYLANLABS-2024M1096373

PATIENT
  Age: 98 Year
  Sex: Female

DRUGS (1)
  1. SYNTHROID [Suspect]
     Active Substance: LEVOTHYROXINE SODIUM
     Indication: Product used for unknown indication
     Dosage: UNK
     Route: 065

REACTIONS (12)
  - Accidental death [Fatal]
  - Adult failure to thrive [Fatal]
  - Anxiety [Fatal]
  - Asthenia [Fatal]
  - Decreased appetite [Fatal]
  - General physical health deterioration [Fatal]
  - Hyperthyroidism [Fatal]
  - Mobility decreased [Fatal]
  - Nausea [Fatal]
  - Weight decreased [Fatal]
  - Incorrect dose administered [Fatal]
  - Transcription medication error [Fatal]
